FAERS Safety Report 14920252 (Version 1)
Quarter: 2018Q2

REPORT INFORMATION
  Report Type: Spontaneous
  Country: DE (occurrence: DE)
  Receive Date: 20180521
  Receipt Date: 20180521
  Transmission Date: 20180711
  Serious: Yes (Hospitalization)
  Sender: FDA-Public Use
  Company Number: DE-BAYER-2018-091392

PATIENT
  Age: 77 Year
  Sex: Male
  Weight: 60 kg

DRUGS (16)
  1. SITAGLIPTIN [Concomitant]
     Active Substance: SITAGLIPTIN
     Dosage: 50 MG, OM
     Route: 048
  2. APIXABAN [Interacting]
     Active Substance: APIXABAN
     Dosage: 2.5 MG, BID
     Route: 048
  3. VITAMIN D [Concomitant]
     Active Substance: CHOLECALCIFEROL
     Dosage: 400 IU, TID
     Route: 048
  4. FRUBIASE CALCIUM [CALCIUM CARBONATE] [Concomitant]
     Dosage: 1 DF, QID
     Route: 048
  5. PANTOPRAZOLE SODIUM. [Concomitant]
     Active Substance: PANTOPRAZOLE SODIUM
     Dosage: 40 MG, OM
     Route: 048
  6. TIOTROPIUM BROMIDE [Concomitant]
     Active Substance: TIOTROPIUM BROMIDE
     Dosage: 18 ?G, OM
     Route: 048
  7. CARBIMAZOLE [Concomitant]
     Active Substance: CARBIMAZOLE
     Dosage: 10 MG, OM
     Route: 048
  8. FUROSEMIDE. [Concomitant]
     Active Substance: FUROSEMIDE
     Dosage: 80 MG, OM
     Route: 048
  9. FORMOTEROL W/BUDESONIDE [Concomitant]
     Active Substance: BUDESONIDE\FORMOTEROL
     Dosage: UNK, BID
     Route: 048
  10. METOPROLOL SUCCINATE. [Concomitant]
     Active Substance: METOPROLOL SUCCINATE
     Dosage: 118.75 MG, QD
     Route: 048
  11. CALCIUM [Concomitant]
     Active Substance: CALCIUM
     Dosage: 59 MG, TID
     Route: 048
  12. ACETYLSALICYLIC ACID({=100 MG) [Suspect]
     Active Substance: ASPIRIN
     Dosage: 100 MG, OM
     Route: 048
  13. PREDNISOLONE. [Interacting]
     Active Substance: PREDNISOLONE
     Dosage: 30 MG, OM
     Route: 048
  14. RAMIPRIL. [Concomitant]
     Active Substance: RAMIPRIL
     Dosage: 5 MG, OM
     Route: 048
  15. MACROGOL [Concomitant]
     Active Substance: POLYETHYLENE GLYCOLS
     Dosage: 13 G, OM
     Route: 048
  16. SIMVASTATIN. [Concomitant]
     Active Substance: SIMVASTATIN
     Dosage: 20 MG, HS
     Route: 048

REACTIONS (6)
  - Asthenia [Unknown]
  - Dyspnoea [Unknown]
  - General physical health deterioration [Unknown]
  - Dizziness [Unknown]
  - Medication error [Unknown]
  - Gastrointestinal haemorrhage [Unknown]
